FAERS Safety Report 4916097-6 (Version None)
Quarter: 2006Q1

REPORT INFORMATION
  Report Type: 
  Country: None (occurrence: None)
  Receive Date: 20060113
  Receipt Date: 20051004
  Transmission Date: 20060701
  Serious: No
  Sender: FDA-Public Use
  Company Number: 2005SP003341

PATIENT
  Age: 58 Year
  Sex: Female
  Weight: 79.8331 kg

DRUGS (6)
  1. LUNESTA [Suspect]
     Indication: INITIAL INSOMNIA
     Dosage: 2 MG, HS, ORAL
     Route: 048
     Dates: start: 20050701, end: 20050701
  2. FLONASE [Concomitant]
  3. ALLEGRA [Concomitant]
  4. VALSARTAN [Concomitant]
  5. LOVASTATIN [Concomitant]
  6. ESTRADIOL [Concomitant]

REACTIONS (1)
  - DYSGEUSIA [None]
